FAERS Safety Report 25482927 (Version 4)
Quarter: 2025Q3

REPORT INFORMATION
  Report Type: Report from Study
  Country: GB (occurrence: GB)
  Receive Date: 20250626
  Receipt Date: 20250806
  Transmission Date: 20251020
  Serious: Yes (Hospitalization)
  Sender: SAMSUNG BIOEPIS
  Company Number: GB-SAMSUNG BIOEPIS-SB-2025-21948

PATIENT
  Age: 45 Year
  Sex: Female

DRUGS (2)
  1. ETANERCEPT [Suspect]
     Active Substance: ETANERCEPT
     Indication: Rheumatoid arthritis
     Route: 058
     Dates: start: 20250502
  2. ETANERCEPT [Suspect]
     Active Substance: ETANERCEPT
     Dosage: RESTARTED;
     Route: 058

REACTIONS (6)
  - Vertigo [Unknown]
  - Tinnitus [Unknown]
  - Dizziness [Unknown]
  - Nausea [Unknown]
  - Rash [Unknown]
  - Therapeutic product effect incomplete [Unknown]
